FAERS Safety Report 24721441 (Version 7)
Quarter: 2025Q1

REPORT INFORMATION
  Report Type: Spontaneous
  Country: US (occurrence: US)
  Receive Date: 20241211
  Receipt Date: 20250106
  Transmission Date: 20250409
  Serious: Yes (Hospitalization)
  Sender: PFIZER
  Company Number: US-PFIZER INC-202400200331

PATIENT
  Age: 79 Year
  Sex: Female
  Weight: 56.7 kg

DRUGS (5)
  1. PREMPRO [Suspect]
     Active Substance: ESTROGENS, CONJUGATED\MEDROXYPROGESTERONE ACETATE
     Indication: Bone density abnormal
     Dates: start: 2022
  2. PREMPRO [Suspect]
     Active Substance: ESTROGENS, CONJUGATED\MEDROXYPROGESTERONE ACETATE
     Indication: Osteoporosis
     Dosage: 0.625MG/5MG; ONCE A DAY
  3. PREMPRO [Suspect]
     Active Substance: ESTROGENS, CONJUGATED\MEDROXYPROGESTERONE ACETATE
     Dosage: TAKING THAT ONE PILL EVERY DAY
  4. AMLODIPINE BESYLATE [Concomitant]
     Active Substance: AMLODIPINE BESYLATE
     Indication: Hypertension
     Dosage: 5MG, ONE A DAY
  5. FUROSEMIDE [Concomitant]
     Active Substance: FUROSEMIDE
     Indication: Peripheral swelling

REACTIONS (5)
  - Fall [Recovered/Resolved]
  - Contusion [Unknown]
  - Pain [Unknown]
  - Weight fluctuation [Unknown]
  - Anxiety [Unknown]

NARRATIVE: CASE EVENT DATE: 20220101
